FAERS Safety Report 5735017-8 (Version None)
Quarter: 2008Q2

REPORT INFORMATION
  Report Type: 
  Country: None (occurrence: None)
  Receive Date: 20080512
  Receipt Date: 20080502
  Transmission Date: 20081010
  Serious: Yes (Other)
  Sender: FDA-Public Use
  Company Number: JP-MERCK-0805USA01018

PATIENT
  Sex: Male

DRUGS (2)
  1. SINGULAIR [Suspect]
     Indication: RHINITIS ALLERGIC
     Route: 048
     Dates: start: 20080323, end: 20080419
  2. HERBS (UNSPECIFIED) [Concomitant]
     Indication: RHINITIS ALLERGIC
     Route: 065
     Dates: start: 20080101

REACTIONS (1)
  - GAMMA-GLUTAMYLTRANSFERASE INCREASED [None]
